FAERS Safety Report 4621730-2 (Version None)
Quarter: 2005Q1

REPORT INFORMATION
  Report Type: 
  Country: None (occurrence: None)
  Receive Date: 20050329
  Receipt Date: 20050322
  Transmission Date: 20050727
  Serious: Yes (Hospitalization, Other)
  Sender: FDA-Public Use
  Company Number: US-ABBOTT-05P-163-0294818-00

PATIENT
  Sex: Female
  Weight: 11.35 kg

DRUGS (1)
  1. OMNICEF [Suspect]
     Indication: EAR INFECTION
     Route: 048
     Dates: start: 20050227, end: 20050302

REACTIONS (3)
  - DRUG INEFFECTIVE [None]
  - MASTOIDITIS [None]
  - PYREXIA [None]
